FAERS Safety Report 7385203-9 (Version None)
Quarter: 2011Q1

REPORT INFORMATION
  Report Type: 
  Country: None (occurrence: None)
  Receive Date: 20110330
  Receipt Date: 20110124
  Transmission Date: 20110831
  Serious: No
  Sender: FDA-Public Use
  Company Number: US-MYLANLABS-2011S1000547

PATIENT
  Age: 45 Year
  Sex: Male

DRUGS (5)
  1. NIFEDIPINE [Suspect]
     Indication: HYPERTENSION
     Route: 048
     Dates: start: 20100901
  2. PAROXETINE HCL [Concomitant]
  3. MORPHINE SULFATE [Concomitant]
  4. TAMSULOSIN HCL [Concomitant]
  5. LORAZEPAM [Concomitant]
     Indication: NAUSEA
     Dosage: EVERY FOUR HOURS PRN

REACTIONS (3)
  - DRUG EFFECT DECREASED [None]
  - BLOOD PRESSURE INCREASED [None]
  - MEDICATION RESIDUE [None]
